FAERS Safety Report 18827538 (Version 3)
Quarter: 2022Q1

REPORT INFORMATION
  Report Type: Spontaneous
  Country: US (occurrence: US)
  Receive Date: 20210201
  Receipt Date: 20220131
  Transmission Date: 20220424
  Serious: No
  Sender: FDA-Public Use
  Company Number: US-ABBVIE-20K-163-3309562-00

PATIENT
  Sex: Female

DRUGS (1)
  1. HUMIRA [Suspect]
     Active Substance: ADALIMUMAB
     Indication: Hidradenitis
     Route: 058

REACTIONS (11)
  - Amenorrhoea [Unknown]
  - Feeling abnormal [Unknown]
  - Mood swings [Unknown]
  - Anxiety [Unknown]
  - Depression [Unknown]
  - Pain [Unknown]
  - Adverse drug reaction [Unknown]
  - Hidradenitis [Recovering/Resolving]
  - Stress [Unknown]
  - Mental disorder [Unknown]
  - Skin irritation [Not Recovered/Not Resolved]
